FAERS Safety Report 6119973-4 (Version None)
Quarter: 2009Q1

REPORT INFORMATION
  Report Type: 
  Country: None (occurrence: None)
  Receive Date: 20090316
  Receipt Date: 20090304
  Transmission Date: 20090719
  Serious: Yes (Death)
  Sender: FDA-Public Use
  Company Number: CA-ELI_LILLY_AND_COMPANY-CA200903001275

PATIENT
  Age: 43 Year
  Sex: Male

DRUGS (3)
  1. ZYPREXA [Suspect]
  2. CIPROFLOXACIN HCL [Concomitant]
  3. ANTIFUNGALS [Concomitant]

REACTIONS (2)
  - ARRHYTHMIA [None]
  - DRUG INTERACTION [None]
